FAERS Safety Report 19950573 (Version 1)
Quarter: 2021Q4

REPORT INFORMATION
  Report Type: Report from Study
  Country: CO (occurrence: CO)
  Receive Date: 20211013
  Receipt Date: 20211013
  Transmission Date: 20220304
  Serious: Yes (Death, Hospitalization, Other)
  Sender: FDA-Public Use
  Company Number: CO-SA-SAC20210927000737

PATIENT

DRUGS (1)
  1. PRALUENT [Suspect]
     Active Substance: ALIROCUMAB
     Indication: Hypercholesterolaemia
     Dosage: 75 MG Q15D
     Route: 058
     Dates: start: 20210906

REACTIONS (3)
  - Respiratory arrest [Fatal]
  - Infarction [Fatal]
  - Genital tract inflammation [Unknown]

NARRATIVE: CASE EVENT DATE: 20210901
